FAERS Safety Report 5279984-8 (Version None)
Quarter: 2007Q1

REPORT INFORMATION
  Report Type: 
  Country: None (occurrence: None)
  Receive Date: 20070329
  Receipt Date: 20070319
  Transmission Date: 20070707
  Serious: Yes (Hospitalization)
  Sender: FDA-Public Use
  Company Number: TR-JNJFOC-20070305979

PATIENT
  Age: 10 Day
  Sex: Female

DRUGS (3)
  1. IBUPROFEN [Suspect]
     Indication: PATENT DUCTUS ARTERIOSUS
     Dosage: INITIAL DOSE, 10 MG/KG FOLLOWED BY TWO DOSES OF 5MG/KG AT 24H AND 48H.
     Route: 048
  2. AMINOGLYCOSIDES [Interacting]
     Indication: DRUG USE FOR UNKNOWN INDICATION
     Dosage: UNKNOWN
  3. SURFACTANT [Concomitant]

REACTIONS (2)
  - DRUG INTERACTION [None]
  - RENAL FAILURE ACUTE [None]
